FAERS Safety Report 10600930 (Version 1)
Quarter: 2014Q4

REPORT INFORMATION
  Report Type: Spontaneous
  Country: US (occurrence: None)
  Receive Date: 20141121
  Receipt Date: 20141121
  Transmission Date: 20150529
  Serious: No
  Sender: FDA-Public Use
  Company Number: None

PATIENT
  Age: 55 Year
  Sex: Male
  Weight: 42.64 kg

DRUGS (1)
  1. BUSPIRONE [Suspect]
     Active Substance: BUSPIRONE HYDROCHLORIDE
     Indication: ANXIETY
     Dosage: 10 MG AM/ 1/2 AT BEDTIME
     Route: 048
     Dates: end: 20141117

REACTIONS (10)
  - Influenza [None]
  - Rectal haemorrhage [None]
  - Epistaxis [None]
  - Fear [None]
  - Somnolence [None]
  - Chest pain [None]
  - Rash [None]
  - Headache [None]
  - Nausea [None]
  - Chest discomfort [None]

NARRATIVE: CASE EVENT DATE: 20141117
